FAERS Safety Report 7355333-6 (Version None)
Quarter: 2011Q1

REPORT INFORMATION
  Report Type: 
  Country: None (occurrence: None)
  Receive Date: 20110316
  Receipt Date: 20110308
  Transmission Date: 20110831
  Serious: Yes (Hospitalization, Other)
  Sender: FDA-Public Use
  Company Number: US-ROCHE-764336

PATIENT
  Sex: Male

DRUGS (2)
  1. PEGASYS [Suspect]
     Indication: HEPATITIS C
     Dosage: TAKEN FOR 1.5 MONTHS
     Route: 065
     Dates: start: 20080101
  2. RIBAVIRIN [Suspect]
     Indication: HEPATITIS C
     Dosage: TAKEN FOR 1.5 MONTHS
     Route: 065
     Dates: start: 20080101

REACTIONS (4)
  - HYPERTENSION [None]
  - PROSTATE CANCER [None]
  - DISORIENTATION [None]
  - GASTROOESOPHAGEAL REFLUX DISEASE [None]
